FAERS Safety Report 19977467 (Version 1)
Quarter: 2021Q4

REPORT INFORMATION
  Report Type: Spontaneous
  Country: US (occurrence: US)
  Receive Date: 20211020
  Receipt Date: 20211020
  Transmission Date: 20220303
  Serious: No
  Sender: FDA-Public Use
  Company Number: US-ALLERGAN-2114650US

PATIENT
  Sex: Male

DRUGS (11)
  1. LINZESS [Suspect]
     Active Substance: LINACLOTIDE
     Indication: Constipation
     Dosage: 72 ?G, TWICE A WEEK
  2. LINZESS [Suspect]
     Active Substance: LINACLOTIDE
     Dosage: 72 ?G, EVERY 3 DAYS
  3. LINZESS [Suspect]
     Active Substance: LINACLOTIDE
     Dosage: 72 ?G, QOD
  4. LINZESS [Suspect]
     Active Substance: LINACLOTIDE
     Dosage: 72 ?G, QD
  5. LINZESS [Suspect]
     Active Substance: LINACLOTIDE
     Dosage: UNK
  6. METFORMIN [Concomitant]
     Active Substance: METFORMIN HYDROCHLORIDE
  7. VITAMINS [Concomitant]
     Active Substance: VITAMINS
  8. UNSPECIFIED INGREDIENT [Concomitant]
     Active Substance: UNSPECIFIED INGREDIENT
     Indication: Blood cholesterol increased
  9. HERBALS [Concomitant]
     Active Substance: HERBALS
  10. PROBIOTICS NOS [Concomitant]
     Active Substance: PROBIOTICS NOS
  11. APPLE CIDER VINEGAR [Concomitant]
     Active Substance: APPLE CIDER VINEGAR

REACTIONS (6)
  - Wrong technique in product usage process [Unknown]
  - Inappropriate schedule of product administration [Unknown]
  - Diarrhoea [Recovering/Resolving]
  - Constipation [Unknown]
  - Drug ineffective [Unknown]
  - Product quality issue [Unknown]
